FAERS Safety Report 23606161 (Version 2)
Quarter: 2024Q1

REPORT INFORMATION
  Report Type: Spontaneous
  Country: US (occurrence: US)
  Receive Date: 20240307
  Receipt Date: 20240313
  Transmission Date: 20240410
  Serious: No
  Sender: FDA-Public Use
  Company Number: US-SANOFI-01966312

PATIENT
  Age: 61 Year
  Sex: Female

DRUGS (1)
  1. LANTUS SOLOSTAR [Suspect]
     Active Substance: INSULIN GLARGINE
     Indication: Type 2 diabetes mellitus
     Dosage: 30 IU, Q12H, 3 IN THE MORNING AND IN 12 NOON
     Route: 058

REACTIONS (4)
  - Blood glucose increased [Unknown]
  - Device issue [Unknown]
  - Off label use [Unknown]
  - Injection site haemorrhage [Unknown]
